FAERS Safety Report 8478864-4 (Version None)
Quarter: 2012Q2

REPORT INFORMATION
  Report Type: 
  Country: None (occurrence: None)
  Receive Date: 20120629
  Receipt Date: 20120601
  Transmission Date: 20120825
  Serious: Yes (Other)
  Sender: FDA-Public Use
  Company Number: US-PFIZER INC-2012132719

PATIENT
  Sex: Female
  Weight: 63 kg

DRUGS (3)
  1. PREMARIN [Suspect]
     Indication: HOT FLUSH
  2. PREMARIN [Suspect]
     Indication: HORMONE REPLACEMENT THERAPY
     Dosage: 0.3 MG, 1X/DAY
     Route: 048
  3. VITAMIN B-12 [Concomitant]
     Indication: MALABSORPTION
     Dosage: 1000 IU, ONCE A WEEK OR ONCE A MONTH

REACTIONS (2)
  - OSTEOARTHRITIS [None]
  - OSTEOPOROSIS [None]
